FAERS Safety Report 17881457 (Version 1)
Quarter: 2020Q2

REPORT INFORMATION
  Report Type: Spontaneous
  Country: US (occurrence: US)
  Receive Date: 20200610
  Receipt Date: 20200610
  Transmission Date: 20200714
  Serious: No
  Sender: FDA-Public Use
  Company Number: US-COLLEGIUM PHARMACEUTICAL, INC.-2019CGM00308

PATIENT
  Age: 70 Year
  Sex: Female

DRUGS (1)
  1. XTAMPZA ER [Suspect]
     Active Substance: OXYCODONE
     Dosage: UNK
     Dates: start: 201911

REACTIONS (4)
  - Paraesthesia [Recovered/Resolved]
  - Oral mucosal blistering [Recovered/Resolved]
  - Headache [Unknown]
  - Product substitution issue [Unknown]

NARRATIVE: CASE EVENT DATE: 201911
